FAERS Safety Report 20977432 (Version 1)
Quarter: 2022Q2

REPORT INFORMATION
  Report Type: Spontaneous
  Country: CA (occurrence: CA)
  Receive Date: 20220617
  Receipt Date: 20220617
  Transmission Date: 20220720
  Serious: Yes (Other)
  Sender: FDA-Public Use
  Company Number: CA-CELLTRION INC.-2022CA006512

PATIENT

DRUGS (2)
  1. INFLECTRA [Suspect]
     Active Substance: INFLIXIMAB-DYYB
     Indication: Crohn^s disease
     Dosage: 400 MG, 0, 2, 6 WEEKS, THEN EVERY 8 WEEKS. NOT YET STARTED
     Route: 042
  2. INFLECTRA [Suspect]
     Active Substance: INFLIXIMAB-DYYB
     Dosage: 400MG,0, 2, 6 WEEKS, THEN EVERY 8 WEEKS
     Route: 042
     Dates: start: 20220513

REACTIONS (11)
  - Starvation [Unknown]
  - Off label use [Unknown]
  - Intentional product use issue [Unknown]
  - Illness [Unknown]
  - Fistula [Unknown]
  - Pain in extremity [Unknown]
  - Stress [Unknown]
  - Emotional distress [Unknown]
  - Fatigue [Unknown]
  - Musculoskeletal pain [Unknown]
  - Asthenia [Unknown]
